FAERS Safety Report 14711183 (Version 3)
Quarter: 2020Q1

REPORT INFORMATION
  Report Type: Report from Study
  Country: US (occurrence: US)
  Receive Date: 20180403
  Receipt Date: 20200207
  Transmission Date: 20200409
  Serious: Yes (Other)
  Sender: FDA-Public Use
  Company Number: PHEH2018US012692

PATIENT
  Sex: Female

DRUGS (1)
  1. ILARIS [Suspect]
     Active Substance: CANAKINUMAB
     Indication: TUMOUR NECROSIS FACTOR RECEPTOR-ASSOCIATED PERIODIC SYNDROME
     Dosage: 150 MG, QMO
     Route: 058
     Dates: start: 20180314

REACTIONS (14)
  - Chills [Unknown]
  - Blister [Unknown]
  - Lymphadenopathy [Unknown]
  - Tumour necrosis factor receptor-associated periodic syndrome [Unknown]
  - Arthralgia [Unknown]
  - Rash [Not Recovered/Not Resolved]
  - Rash pruritic [Unknown]
  - Influenza like illness [Unknown]
  - Pyrexia [Not Recovered/Not Resolved]
  - Pain in extremity [Unknown]
  - Migraine [Not Recovered/Not Resolved]
  - Condition aggravated [Unknown]
  - Herpes zoster [Not Recovered/Not Resolved]
  - Hypersensitivity [Unknown]
